FAERS Safety Report 6632854-2 (Version None)
Quarter: 2010Q1

REPORT INFORMATION
  Report Type: 
  Country: None (occurrence: None)
  Receive Date: 20100312
  Receipt Date: 20100210
  Transmission Date: 20100710
  Serious: No
  Sender: FDA-Public Use
  Company Number: US-BIOGENIDEC-2010BI004577

PATIENT
  Age: 54 Year
  Sex: Female

DRUGS (3)
  1. AVONEX [Suspect]
     Indication: MULTIPLE SCLEROSIS
     Route: 030
     Dates: start: 19990101, end: 20010101
  2. AVONEX [Suspect]
     Route: 030
     Dates: start: 20010101, end: 20030701
  3. AVONEX [Suspect]
     Route: 030
     Dates: start: 20030801

REACTIONS (7)
  - CERVICAL VERTEBRAL FRACTURE [None]
  - CHILLS [None]
  - FALL [None]
  - FATIGUE [None]
  - MOBILITY DECREASED [None]
  - MULTIPLE SCLEROSIS RELAPSE [None]
  - PYREXIA [None]
